FAERS Safety Report 25653191 (Version 1)
Quarter: 2025Q3

REPORT INFORMATION
  Report Type: Report from Study
  Country: US (occurrence: US)
  Receive Date: 20250807
  Receipt Date: 20250807
  Transmission Date: 20251020
  Serious: Yes (Other)
  Sender: ALEXION PHARMACEUTICALS
  Company Number: US-AstraZeneca-CH-00924865A

PATIENT
  Sex: Female

DRUGS (1)
  1. DAPAGLIFLOZIN [Suspect]
     Active Substance: DAPAGLIFLOZIN
     Route: 065

REACTIONS (8)
  - Fall [Unknown]
  - Arthralgia [Unknown]
  - Acute kidney injury [Unknown]
  - Respiratory failure [Unknown]
  - Vitamin B12 deficiency [Unknown]
  - Blood loss anaemia [Unknown]
  - Urinary retention [Unknown]
  - Mobility decreased [Unknown]
